FAERS Safety Report 24449540 (Version 1)
Quarter: 2024Q4

REPORT INFORMATION
  Report Type: Spontaneous
  Country: US (occurrence: US)
  Receive Date: 20241017
  Receipt Date: 20241017
  Transmission Date: 20250115
  Serious: No
  Sender: TEVA
  Company Number: US-TEVA-VS-3249179

PATIENT
  Age: 68 Year
  Sex: Female

DRUGS (1)
  1. CLONAZEPAM [Suspect]
     Active Substance: CLONAZEPAM
     Indication: Insomnia
     Dosage: 1MG ONCE DAILY AT NIGHT
     Route: 065
     Dates: start: 2009

REACTIONS (5)
  - Migraine [Unknown]
  - Product odour abnormal [Unknown]
  - Drug ineffective [Unknown]
  - Nausea [Unknown]
  - Product used for unknown indication [Unknown]

NARRATIVE: CASE EVENT DATE: 20240901
